FAERS Safety Report 19019586 (Version 1)
Quarter: 2021Q1

REPORT INFORMATION
  Report Type: Spontaneous
  Country: US (occurrence: US)
  Receive Date: 20210316
  Receipt Date: 20210316
  Transmission Date: 20210420
  Serious: Yes (Other)
  Sender: FDA-Public Use
  Company Number: US-ASTRAZENECA-2021A118655

PATIENT
  Age: 65 Year
  Sex: Male

DRUGS (2)
  1. OLAPARIB. [Suspect]
     Active Substance: OLAPARIB
     Indication: NEUROENDOCRINE CARCINOMA METASTATIC
     Route: 048
  2. PEMBOLIZUMAB [Concomitant]
     Active Substance: PEMBROLIZUMAB
     Indication: NEUROENDOCRINE CARCINOMA OF PROSTATE
     Route: 065

REACTIONS (5)
  - Drug resistance [Unknown]
  - Off label use [Unknown]
  - Metastases to liver [Unknown]
  - Acquired gene mutation [Unknown]
  - Drug ineffective for unapproved indication [Unknown]
